FAERS Safety Report 7030210-9 (Version None)
Quarter: 2010Q4

REPORT INFORMATION
  Report Type: 
  Country: None (occurrence: None)
  Receive Date: 20101006
  Receipt Date: 20100927
  Transmission Date: 20110411
  Serious: Yes (Hospitalization)
  Sender: FDA-Public Use
  Company Number: GB-US-EMD SERONO, INC.-7009770

PATIENT
  Sex: Female

DRUGS (8)
  1. REBIF [Suspect]
     Indication: RELAPSING-REMITTING MULTIPLE SCLEROSIS
     Dates: start: 20100625, end: 20100101
  2. REBIF [Suspect]
     Dates: start: 20100101
  3. REBIF [Suspect]
     Dates: start: 20100810, end: 20100901
  4. ACETAMINOPHEN AND CODEINE PHOSPHATE [Concomitant]
  5. INSULIN [Concomitant]
     Indication: DIABETES MELLITUS
  6. LEVOTHYROXINE SODIUM [Concomitant]
     Indication: HYPOTHYROIDISM
  7. IRON [Concomitant]
     Indication: ANAEMIA
  8. METACHLORPROMIDE [Concomitant]
     Indication: MALAISE

REACTIONS (8)
  - DEFAECATION URGENCY [None]
  - DIARRHOEA [None]
  - HAEMOGLOBIN DECREASED [None]
  - INFLUENZA LIKE ILLNESS [None]
  - INJECTION SITE ERYTHEMA [None]
  - ORTHOPEDIC PROCEDURE [None]
  - URINARY TRACT INFECTION [None]
  - WHITE BLOOD CELL COUNT DECREASED [None]
